FAERS Safety Report 5225096-9 (Version None)
Quarter: 2007Q1

REPORT INFORMATION
  Report Type: 
  Country: None (occurrence: None)
  Receive Date: 20070126
  Receipt Date: 20070112
  Transmission Date: 20070707
  Serious: Yes (Other)
  Sender: FDA-Public Use
  Company Number: 2007BI001286

PATIENT
  Age: 39 Year
  Sex: Male

DRUGS (1)
  1. NATALIZUMAB [Suspect]
     Indication: MULTIPLE SCLEROSIS
     Dosage: 300 MG; QM; IV
     Route: 042
     Dates: start: 20061116

REACTIONS (5)
  - ANXIETY [None]
  - BRONCHITIS [None]
  - DRUG HYPERSENSITIVITY [None]
  - REFUSAL OF TREATMENT BY PATIENT [None]
  - SNEEZING [None]
